FAERS Safety Report 4917874-8 (Version None)
Quarter: 2006Q1

REPORT INFORMATION
  Report Type: 
  Country: None (occurrence: None)
  Receive Date: 20060215
  Receipt Date: 20060202
  Transmission Date: 20060701
  Serious: Yes (Death)
  Sender: FDA-Public Use
  Company Number: 2006000008

PATIENT
  Age: 36 Year
  Sex: Female

DRUGS (8)
  1. IDARUBICIN HCL [Suspect]
     Indication: T-CELL LYMPHOMA
     Dosage: 10 MG/M*2 (DAYS 1-2), INTRAVENOUS
     Route: 042
  2. ETOPOSIDE [Suspect]
     Indication: T-CELL LYMPHOMA
     Dosage: 150 MG/M*2 (DAYS 1-5), INTRAVENOUS
     Route: 042
  3. IFOSFAMIDE [Suspect]
     Indication: T-CELL LYMPHOMA
     Dosage: 1000 MG/M*2 (DAY), INTRAVENOUS
     Route: 042
  4. METHOTREXATE [Suspect]
     Indication: T-CELL LYMPHOMA
     Dosage: INTRATHECAL
     Route: 037
  5. CISPLATIN [Suspect]
     Indication: T-CELL LYMPHOMA
     Dosage: 100 MG/M*2 (DAY 1), INTRAVENOUS
     Route: 042
  6. CYTARABINE [Suspect]
     Indication: T-CELL LYMPHOMA
     Dosage: 2 G/M2 (DAY 2), INTRAVENOUS
     Route: 042
  7. MESNA [Suspect]
     Indication: T-CELL LYMPHOMA
     Dosage: 600 MG/M2 (FOR 5 DAYS), INTRAVENOUS
     Route: 042
  8. DEXAMETHASONE [Suspect]
     Indication: T-CELL LYMPHOMA
     Dosage: 40 MG (DAILY, FOR 4 DAYS)

REACTIONS (20)
  - BLINDNESS CORTICAL [None]
  - BLOOD CREATININE INCREASED [None]
  - BLOOD PRESSURE INCREASED [None]
  - BLOOD URIC ACID INCREASED [None]
  - DISORIENTATION [None]
  - GRAND MAL CONVULSION [None]
  - HAEMODIALYSIS [None]
  - HALLUCINATION [None]
  - LEUKOENCEPHALOPATHY [None]
  - LYMPHADENOPATHY [None]
  - MALIGNANT NEOPLASM PROGRESSION [None]
  - NEUROTOXICITY [None]
  - PAPILLOEDEMA [None]
  - PARANEOPLASTIC SYNDROME [None]
  - PLATELET COUNT DECREASED [None]
  - RENAL MASS [None]
  - RESUSCITATION [None]
  - STUPOR [None]
  - T-CELL LYMPHOMA [None]
  - THERAPY NON-RESPONDER [None]
